FAERS Safety Report 8115418-3 (Version None)
Quarter: 2012Q1

REPORT INFORMATION
  Report Type: 
  Country: None (occurrence: None)
  Receive Date: 20120201
  Receipt Date: 20111205
  Transmission Date: 20120608
  Serious: No
  Sender: FDA-Public Use
  Company Number: NXG-11-008

PATIENT
  Sex: Female

DRUGS (1)
  1. POLYETHYLENE GLYCOL 3350 [Suspect]
     Dosage: 2 DOSES/17 GRAMS

REACTIONS (7)
  - ABDOMINAL DISCOMFORT [None]
  - PRODUCT ODOUR ABNORMAL [None]
  - PRODUCT TASTE ABNORMAL [None]
  - MUSCLE SPASMS [None]
  - DIARRHOEA [None]
  - NAUSEA [None]
  - INTESTINAL OBSTRUCTION [None]
